FAERS Safety Report 8371291-X (Version None)
Quarter: 2012Q2

REPORT INFORMATION
  Report Type: 
  Country: None (occurrence: None)
  Receive Date: 20120518
  Receipt Date: 20120508
  Transmission Date: 20120825
  Serious: Yes (Hospitalization)
  Sender: FDA-Public Use
  Company Number: US-ELI_LILLY_AND_COMPANY-US201205004301

PATIENT
  Sex: Female

DRUGS (10)
  1. FISH OIL [Concomitant]
  2. ALPRAZOLAM [Concomitant]
  3. BIOTIN [Concomitant]
  4. PREDNISONE [Concomitant]
     Indication: PNEUMONIA
  5. HUMALOG [Suspect]
     Indication: DIABETES MELLITUS
     Dosage: UNK, PRN
     Dates: start: 20100301
  6. MONTELUKAST SODIUM [Concomitant]
  7. CYANOCOBALAMIN [Concomitant]
  8. ERGOCALCIFEROL [Concomitant]
  9. ASPIRIN [Concomitant]
  10. MULTI-VITAMIN [Concomitant]

REACTIONS (4)
  - DRUG EFFECT DECREASED [None]
  - PSEUDOMONAS INFECTION [None]
  - BLOOD GLUCOSE INCREASED [None]
  - HYPERHIDROSIS [None]
